FAERS Safety Report 5651453-2 (Version None)
Quarter: 2008Q1

REPORT INFORMATION
  Report Type: 
  Country: None (occurrence: None)
  Receive Date: 20080131
  Receipt Date: 20071025
  Transmission Date: 20080703
  Serious: No
  Sender: FDA-Public Use
  Company Number: US200710006618

PATIENT
  Age: 43 Year
  Sex: Female

DRUGS (3)
  1. BYETTA [Suspect]
     Indication: TYPE 2 DIABETES MELLITUS
     Dosage: 5UG, 2/D, SUBCUTANEOUS; 10 UG 2/D, SUBCUTANEOUS
     Route: 058
     Dates: start: 20070601, end: 20071001
  2. BYETTA [Suspect]
     Indication: TYPE 2 DIABETES MELLITUS
     Dosage: 5UG, 2/D, SUBCUTANEOUS; 10 UG 2/D, SUBCUTANEOUS
     Route: 058
     Dates: start: 20071001
  3. FORTAMET (METFORMIN HYDROCHLORIDE) [Concomitant]

REACTIONS (4)
  - ABDOMINAL DISTENSION [None]
  - FATIGUE [None]
  - INJECTION SITE BRUISING [None]
  - NAUSEA [None]
